FAERS Safety Report 4957092-0 (Version None)
Quarter: 2006Q1

REPORT INFORMATION
  Report Type: 
  Country: None (occurrence: None)
  Receive Date: 20060323
  Receipt Date: 20060315
  Transmission Date: 20060701
  Serious: Yes (Hospitalization, Disabling, Other)
  Sender: FDA-Public Use
  Company Number: 2006036278

PATIENT
  Age: 38 Year
  Sex: Male
  Weight: 102.0593 kg

DRUGS (5)
  1. LIPITOR [Suspect]
     Indication: BLOOD CHOLESTEROL INCREASED
     Dosage: 20 MG (20 MG, 1 IN 1 D)
  2. NEURONTIN [Suspect]
     Indication: PAIN IN EXTREMITY
     Dosage: 1200 MG (400 MG, 3 IN 1 D)
     Dates: start: 20040101
  3. AVANDIA [Concomitant]
  4. PLAVIX [Concomitant]
  5. BISOPROLOL FUMARATE [Concomitant]

REACTIONS (13)
  - BLOOD PRESSURE INCREASED [None]
  - CEREBROVASCULAR ACCIDENT [None]
  - DIABETIC COMA [None]
  - IMPAIRED WORK ABILITY [None]
  - LIMB INJURY [None]
  - MALAISE [None]
  - MUSCLE CONTRACTURE [None]
  - NERVE INJURY [None]
  - OEDEMA PERIPHERAL [None]
  - OPEN WOUND [None]
  - OSTEOMYELITIS [None]
  - OSTEOPOROSIS [None]
  - SCAB [None]
